FAERS Safety Report 15703403 (Version 1)
Quarter: 2018Q4

REPORT INFORMATION
  Report Type: Report from Study
  Country: US (occurrence: US)
  Receive Date: 20181210
  Receipt Date: 20181210
  Transmission Date: 20190205
  Serious: No
  Sender: FDA-Public Use
  Company Number: US-KYOWAKIRIN-2017BKK003116

PATIENT

DRUGS (3)
  1. GRANISETRON [Suspect]
     Active Substance: GRANISETRON
     Dosage: 1 PATCH
     Route: 062
     Dates: start: 20171110
  2. GRANISETRON [Suspect]
     Active Substance: GRANISETRON
     Dosage: 1 PATCH
     Route: 062
     Dates: start: 20171109, end: 20171110
  3. GRANISETRON [Suspect]
     Active Substance: GRANISETRON
     Indication: PROPHYLAXIS OF NAUSEA AND VOMITING
     Dosage: 1 PATCH
     Route: 062
     Dates: start: 20171109, end: 20171109

REACTIONS (4)
  - Wrong technique in product usage process [Unknown]
  - Product adhesion issue [Unknown]
  - Nasopharyngitis [Unknown]
  - Drug ineffective [Unknown]

NARRATIVE: CASE EVENT DATE: 2017
